FAERS Safety Report 6073471-5 (Version None)
Quarter: 2009Q1

REPORT INFORMATION
  Report Type: 
  Country: None (occurrence: None)
  Receive Date: 20090211
  Receipt Date: 20090205
  Transmission Date: 20090719
  Serious: Yes (Other)
  Sender: FDA-Public Use
  Company Number: JP-BAYER-200910296BYL

PATIENT
  Age: 71 Year
  Sex: Female
  Weight: 75 kg

DRUGS (11)
  1. AVELOX [Suspect]
     Indication: BRONCHITIS
     Dosage: TOTAL DAILY DOSE: 400 MG  UNIT DOSE: 400 MG
     Route: 048
     Dates: start: 20081222, end: 20081222
  2. HOKUNALIN:TAPE [Concomitant]
     Indication: ASTHMA
     Dosage: TOTAL DAILY DOSE: 2 MG  UNIT DOSE: 2 MG
     Route: 062
     Dates: start: 20081222, end: 20081222
  3. NAUZELIN [Concomitant]
     Indication: HYPERTENSION
     Dosage: TOTAL DAILY DOSE: 10 MG  UNIT DOSE: 10 MG
     Route: 048
     Dates: start: 20081222, end: 20081222
  4. CALBLOCK [Concomitant]
     Indication: HYPERLIPIDAEMIA
     Dosage: TOTAL DAILY DOSE: 16 MG  UNIT DOSE: 16 MG
     Route: 048
     Dates: start: 20080625
  5. NU-LOTAN [Concomitant]
     Indication: HYPERLIPIDAEMIA
     Dosage: TOTAL DAILY DOSE: 50 MG  UNIT DOSE: 50 MG
     Route: 048
     Dates: start: 20080625
  6. ZETIA [Concomitant]
     Indication: HYPERLIPIDAEMIA
     Dosage: TOTAL DAILY DOSE: 10 MG  UNIT DOSE: 10 MG
     Route: 048
     Dates: start: 20080625
  7. BEZATOL SR [Concomitant]
     Indication: HYPERLIPIDAEMIA
     Dosage: TOTAL DAILY DOSE: 400 MG  UNIT DOSE: 200 MG
     Route: 048
     Dates: start: 20080625
  8. ROCEPHIN [Concomitant]
     Indication: BRONCHITIS
     Dosage: TOTAL DAILY DOSE: 2 G  UNIT DOSE: 1 G
     Route: 041
     Dates: start: 20081222, end: 20081229
  9. MEPTIN [Concomitant]
     Indication: ASTHMA
     Dosage: TOTAL DAILY DOSE: 0.5 ML  UNIT DOSE: 0.5 ML
     Route: 055
     Dates: start: 20081222, end: 20081229
  10. DECADRON [Concomitant]
     Indication: ASTHMA
     Dosage: TOTAL DAILY DOSE: 2 MG  UNIT DOSE: 2 MG
     Route: 041
     Dates: start: 20081222, end: 20081229
  11. DECADRON [Concomitant]
     Dosage: TOTAL DAILY DOSE: 2 MG  UNIT DOSE: 2 MG
     Route: 055
     Dates: start: 20081222, end: 20081229

REACTIONS (4)
  - ATRIAL FIBRILLATION [None]
  - ATRIAL FLUTTER [None]
  - CHEST PAIN [None]
  - PALPITATIONS [None]
